FAERS Safety Report 8936901 (Version 1)
Quarter: 2012Q4

REPORT INFORMATION
  Report Type: 
  Country: ES (occurrence: ES)
  Receive Date: 20121130
  Receipt Date: 20121130
  Transmission Date: 20130627
  Serious: Yes (Life-Threatening, Hospitalization, Other)
  Sender: FDA-Public Use
  Company Number: PHHY2012ES098862

PATIENT
  Age: 62 Year
  Sex: Male

DRUGS (3)
  1. IDARUBICIN [Suspect]
     Indication: MYELOID LEUKAEMIA
     Dosage: 66 mg, daily
     Dates: start: 20110914, end: 20110916
  2. CYTARABINE [Interacting]
     Indication: MYELOID LEUKAEMIA
     Dosage: 36.6 mg, UNK
     Dates: start: 20110914, end: 20110920
  3. ETOPOSIDE [Interacting]
     Dosage: 549 mg, UNK
     Dates: start: 20110914, end: 20110916

REACTIONS (2)
  - Pancytopenia [Recovered/Resolved]
  - Drug interaction [Unknown]
